FAERS Safety Report 8538998-2 (Version None)
Quarter: 2012Q3

REPORT INFORMATION
  Report Type: 
  Country: None (occurrence: None)
  Receive Date: 20120713
  Receipt Date: 20120702
  Transmission Date: 20120928
  Serious: Yes (Hospitalization, Other)
  Sender: FDA-Public Use
  Company Number: 2012P1048116

PATIENT

DRUGS (1)
  1. HEPARIN [Suspect]
     Indication: CATHETERISATION CARDIAC
     Dosage: 23,000 IU; X1

REACTIONS (3)
  - GASTROINTESTINAL HAEMORRHAGE [None]
  - DRUG ADMINISTRATION ERROR [None]
  - INCORRECT DOSE ADMINISTERED [None]
